FAERS Safety Report 10066693 (Version 1)
Quarter: 2014Q2

REPORT INFORMATION
  Report Type: Spontaneous
  Country: US (occurrence: None)
  Receive Date: 20140401
  Receipt Date: 20140401
  Transmission Date: 20141212
  Serious: Yes (Hospitalization)
  Sender: FDA-Public Use
  Company Number: PHEH2013US006542

PATIENT
  Age: 92 Year
  Sex: Male
  Weight: 70.3 kg

DRUGS (11)
  1. EXELON PATCH [Suspect]
     Indication: DEMENTIA
     Route: 062
     Dates: start: 20120209
  2. WARFARIN SODIUM [Suspect]
     Indication: DEMENTIA
  3. ZOCOR (SIMVASTATIN) [Concomitant]
  4. PRILOSEC (OMEPRAZOLE) [Concomitant]
  5. TOPROL (METOPROLOL SUCCINATE) [Concomitant]
  6. ENALAPRIL (ENALAPRIL) [Concomitant]
  7. SYNTHROID (LEVOTHYROXINE SODIUM) [Concomitant]
  8. CARDIZEM (DILTIAZEM HYDROCHLORIDE) [Concomitant]
  9. TRAMADOL (TRAMADOL) [Concomitant]
  10. CORDARONE (AMIODARONE HYDROCHLORIDE)/ORAL/TABLET/200 MILLIGRAMS(S) [Concomitant]
  11. ARTHROTEC (DICLOFENAC SODIUM, MISOPROSTOL) [Concomitant]

REACTIONS (2)
  - Nausea [None]
  - Vomiting [None]
